FAERS Safety Report 18481030 (Version 2)
Quarter: 2021Q1

REPORT INFORMATION
  Report Type: Report from Study
  Country: US (occurrence: US)
  Receive Date: 20201109
  Receipt Date: 20210111
  Transmission Date: 20210419
  Serious: Yes (Death)
  Sender: FDA-Public Use
  Company Number: US-OTSUKA-2020_027615

PATIENT

DRUGS (1)
  1. ARIPIPRAZOLE (DUAL CHAMBER) [Suspect]
     Active Substance: ARIPIPRAZOLE
     Indication: PRODUCT USED FOR UNKNOWN INDICATION
     Dosage: 400 MG, UNK
     Route: 065

REACTIONS (1)
  - Death [Fatal]
